FAERS Safety Report 11796637 (Version 2)
Quarter: 2016Q3

REPORT INFORMATION
  Report Type: Spontaneous
  Country: AU (occurrence: AU)
  Receive Date: 20151203
  Receipt Date: 20160803
  Transmission Date: 20161109
  Serious: No
  Sender: FDA-Public Use
  Company Number: AU-GLENMARK PHARMACEUTICALS INC, USA.-2015GMK019120

PATIENT
  Age: 70 Year
  Sex: Female

DRUGS (3)
  1. PRAMIPEXOLE DIHYDROCHLORIDE. [Suspect]
     Active Substance: PRAMIPEXOLE DIHYDROCHLORIDE
     Dosage: 2.5 MG, QD
  2. LEVODOPA [Concomitant]
     Active Substance: LEVODOPA
     Indication: PARKINSON^S DISEASE
     Dosage: 600 MG, QD
  3. PRAMIPEXOLE DIHYDROCHLORIDE. [Suspect]
     Active Substance: PRAMIPEXOLE DIHYDROCHLORIDE
     Indication: PARKINSON^S DISEASE
     Dosage: 3 MG, QD

REACTIONS (6)
  - Hypophagia [Recovering/Resolving]
  - Weight decreased [Recovering/Resolving]
  - Torticollis [Recovering/Resolving]
  - Mobility decreased [Recovering/Resolving]
  - Hallucination, visual [Unknown]
  - Disease recurrence [Unknown]
